FAERS Safety Report 18832446 (Version 1)
Quarter: 2021Q1

REPORT INFORMATION
  Report Type: Spontaneous
  Country: US (occurrence: US)
  Receive Date: 20210201
  Receipt Date: 20210201
  Transmission Date: 20210419
  Serious: No
  Sender: FDA-Public Use
  Company Number: US-BIOMARINAP-US-2021-134503

PATIENT
  Age: 20 Year
  Sex: Female

DRUGS (1)
  1. ALDURAZYME [Suspect]
     Active Substance: LARONIDASE
     Indication: MUCOPOLYSACCHARIDOSIS I
     Dosage: 23.20 MILLIGRAM, QW
     Route: 042
     Dates: start: 20200303

REACTIONS (3)
  - Cardiac disorder [Not Recovered/Not Resolved]
  - Exposure during pregnancy [Unknown]
  - Dyspnoea [Not Recovered/Not Resolved]
